FAERS Safety Report 16378871 (Version 2)
Quarter: 2024Q4

REPORT INFORMATION
  Report Type: Other
  Country: CA (occurrence: CA)
  Receive Date: 20190531
  Receipt Date: 20241023
  Transmission Date: 20250115
  Serious: Yes (Hospitalization, Other)
  Sender: APOTEX
  Company Number: CA-APOTEX-2019AP014831

PATIENT
  Age: 43 Year
  Sex: Male

DRUGS (15)
  1. ALBUTEROL [Suspect]
     Active Substance: ALBUTEROL
     Indication: Asthma
     Dosage: UNK
     Route: 065
  2. CETIRIZINE [Suspect]
     Active Substance: CETIRIZINE HYDROCHLORIDE
     Indication: Product used for unknown indication
     Dosage: UNK
     Route: 065
  3. CITALOPRAM [Suspect]
     Active Substance: CITALOPRAM
     Indication: Product used for unknown indication
     Dosage: 20 MILLIGRAM, QD
     Route: 065
  4. PREDNISONE [Suspect]
     Active Substance: PREDNISONE
     Indication: Product used for unknown indication
     Dosage: UNK
     Route: 065
  5. RABEPRAZOLE [Suspect]
     Active Substance: RABEPRAZOLE
     Indication: Product used for unknown indication
     Dosage: UNK
     Route: 065
  6. ATIVAN [Suspect]
     Active Substance: LORAZEPAM
     Indication: Product used for unknown indication
     Dosage: UNK
     Route: 065
  7. BUDESONIDE\FORMOTEROL FUMARATE [Suspect]
     Active Substance: BUDESONIDE\FORMOTEROL FUMARATE
     Indication: Product used for unknown indication
     Dosage: 2 DOSAGE FORM, TID
  8. MEPOLIZUMAB [Suspect]
     Active Substance: MEPOLIZUMAB
     Indication: Asthma
     Dosage: 100 MILLIGRAM (1 EVERY 4 WEEKS)
     Route: 042
  9. NUCALA [Suspect]
     Active Substance: MEPOLIZUMAB
     Indication: Asthma
     Dosage: 100 MILLIGRAM
     Route: 042
  10. CETIRIZINE HYDROCHLORIDE [Suspect]
     Active Substance: CETIRIZINE HYDROCHLORIDE
     Indication: Product used for unknown indication
     Dosage: UNK
     Route: 065
  11. SPORANOX [Suspect]
     Active Substance: ITRACONAZOLE
     Indication: Product used for unknown indication
     Dosage: 200 MILLIGRAM, QD
     Route: 065
  12. SPORANOX [Suspect]
     Active Substance: ITRACONAZOLE
     Dosage: 3 DOSAGE FORM, QD
     Route: 065
  13. SPORANOX [Suspect]
     Active Substance: ITRACONAZOLE
     Dosage: 2 DOSAGE FORM, QD
     Route: 065
  14. SYMBICORT [Suspect]
     Active Substance: BUDESONIDE\FORMOTEROL FUMARATE DIHYDRATE
     Indication: Product used for unknown indication
     Dosage: 2 DOSAGE FORM, QD
  15. AZITHROMYCIN [Concomitant]
     Active Substance: AZITHROMYCIN
     Indication: Product used for unknown indication
     Dosage: 500 MILLIGRAM, QD
     Route: 065

REACTIONS (33)
  - Sinusitis [Recovering/Resolving]
  - Bronchopulmonary aspergillosis allergic [Recovering/Resolving]
  - Anxiety [Recovering/Resolving]
  - Asthma [Recovering/Resolving]
  - Bronchial disorder [Recovering/Resolving]
  - Bronchiectasis [Recovering/Resolving]
  - Dyspnoea [Recovering/Resolving]
  - Condition aggravated [Recovering/Resolving]
  - Folliculitis [Recovering/Resolving]
  - Forced expiratory volume decreased [Recovering/Resolving]
  - Full blood count abnormal [Recovering/Resolving]
  - Haemoptysis [Recovering/Resolving]
  - Hyperventilation [Recovering/Resolving]
  - Loss of personal independence in daily activities [Recovering/Resolving]
  - Lymphadenopathy [Recovering/Resolving]
  - Mycobacterial infection [Recovering/Resolving]
  - Obstructive airways disorder [Recovering/Resolving]
  - Parathyroid gland enlargement [Recovering/Resolving]
  - Respiratory disorder [Recovering/Resolving]
  - Secretion discharge [Recovering/Resolving]
  - Sinus congestion [Recovering/Resolving]
  - Sleep disorder due to a general medical condition [Recovering/Resolving]
  - Tendon disorder [Recovering/Resolving]
  - Upper respiratory fungal infection [Recovering/Resolving]
  - Upper respiratory tract infection [Recovering/Resolving]
  - Weight increased [Recovering/Resolving]
  - Rash [Recovering/Resolving]
  - Wheezing [Recovering/Resolving]
  - Chest pain [Recovering/Resolving]
  - Chest discomfort [Recovering/Resolving]
  - Lung disorder [Recovering/Resolving]
  - Cough [Recovering/Resolving]
  - Therapeutic product effect incomplete [Recovering/Resolving]
